FAERS Safety Report 7324324 (Version 4)
Quarter: 2020Q3

REPORT INFORMATION
  Report Type: Report from Study
  Country: PL (occurrence: PL)
  Receive Date: 20100318
  Receipt Date: 20100504
  Transmission Date: 20201104
  Serious: Yes (Other)
  Sender: FDA-Public Use
  Company Number: PL-WYE-H14111410

PATIENT
  Age: 45 Year
  Sex: Female
  Weight: 92 kg

DRUGS (3)
  1. BOSUTINIB [Suspect]
     Active Substance: BOSUTINIB
     Indication: BREAST CANCER METASTATIC
     Route: 048
     Dates: start: 20100226, end: 20100312
  2. LETROZOLE. [Suspect]
     Active Substance: LETROZOLE
     Dosage: NOT PROVIDED
     Route: 048
     Dates: start: 20100324
  3. LETROZOLE. [Suspect]
     Active Substance: LETROZOLE
     Indication: BREAST CANCER METASTATIC
     Route: 048
     Dates: start: 20100226, end: 20100312

REACTIONS (1)
  - Hepatotoxicity [Recovered/Resolved]

NARRATIVE: CASE EVENT DATE: 20100312
